FAERS Safety Report 24102498 (Version 1)
Quarter: 2024Q3

REPORT INFORMATION
  Report Type: Other
  Country: TR (occurrence: TR)
  Receive Date: 20240717
  Receipt Date: 20240717
  Transmission Date: 20241016
  Serious: Yes (Death, Hospitalization, Other)
  Sender: BIONPHARMA
  Company Number: TR-Bion-013458

PATIENT
  Age: 17 Year
  Sex: Female

DRUGS (5)
  1. FLUVOXAMINE MALEATE [Suspect]
     Active Substance: FLUVOXAMINE MALEATE
     Indication: Product used for unknown indication
     Dosage: 10 TABLETS
  2. RISPERIDONE [Concomitant]
     Active Substance: RISPERIDONE
     Indication: Product used for unknown indication
     Dosage: 5 TABLETS
  3. SERTRALINE [Concomitant]
     Active Substance: SERTRALINE HYDROCHLORIDE
     Indication: Product used for unknown indication
     Dosage: 10 TABLETS
  4. FLUOXETINE [Concomitant]
     Active Substance: FLUOXETINE HYDROCHLORIDE
     Indication: Product used for unknown indication
     Dosage: 8 TABLETS
  5. METFORMIN [Concomitant]
     Active Substance: METFORMIN HYDROCHLORIDE
     Indication: Product used for unknown indication
     Dosage: 40 TABLETS

REACTIONS (5)
  - Metabolic acidosis [Fatal]
  - Lactic acidosis [Fatal]
  - Brugada syndrome [Fatal]
  - Suicide attempt [Fatal]
  - Intentional overdose [Fatal]
